FAERS Safety Report 10527365 (Version 1)
Quarter: 2014Q4

REPORT INFORMATION
  Report Type: Spontaneous
  Country: FR (occurrence: FR)
  Receive Date: 20141020
  Receipt Date: 20141020
  Transmission Date: 20150528
  Serious: Yes (Hospitalization)
  Sender: FDA-Public Use
  Company Number: FR-JNJFOC-20141008566

PATIENT
  Age: 83 Year
  Sex: Male

DRUGS (9)
  1. PERINDOPRIL [Concomitant]
     Active Substance: PERINDOPRIL
     Route: 065
  2. BISOPROLOL HEMIFUMARATE [Concomitant]
     Active Substance: BISOPROLOL FUMARATE
     Route: 065
  3. PREVISCAN (FLUINDIONE) [Concomitant]
     Active Substance: FLUINDIONE
     Route: 065
  4. XARELTO [Suspect]
     Active Substance: RIVAROXABAN
     Indication: ATRIAL FIBRILLATION
     Route: 048
     Dates: start: 20140506, end: 20140813
  5. ANDROCUR [Concomitant]
     Active Substance: CYPROTERONE ACETATE
     Dosage: 2 CP
     Route: 065
  6. XARELTO [Suspect]
     Active Substance: RIVAROXABAN
     Indication: CEREBROVASCULAR ACCIDENT PROPHYLAXIS
     Route: 048
     Dates: start: 20140506, end: 20140813
  7. CYPROTERONE ACETATE [Suspect]
     Active Substance: CYPROTERONE ACETATE
     Indication: PROSTATE CANCER
     Route: 048
     Dates: start: 2013, end: 20140813
  8. INEXIUM [Concomitant]
     Active Substance: ESOMEPRAZOLE
  9. GONADORELIN [Suspect]
     Active Substance: GONADORELIN
     Indication: PRODUCT USED FOR UNKNOWN INDICATION
     Route: 065
     Dates: start: 2013

REACTIONS (1)
  - Ischaemic stroke [Recovered/Resolved]

NARRATIVE: CASE EVENT DATE: 20140813
